FAERS Safety Report 9439229 (Version 1)
Quarter: 2013Q3

REPORT INFORMATION
  Report Type: Report from Study
  Country: CA (occurrence: CA)
  Receive Date: 20130804
  Receipt Date: 20130804
  Transmission Date: 20140515
  Serious: Yes (Other)
  Sender: FDA-Public Use
  Company Number: CA-US-EMD SERONO, INC.-7226777

PATIENT
  Age: 37 Year
  Sex: Female
  Weight: 112 kg

DRUGS (1)
  1. REBIF [Suspect]
     Indication: RELAPSING-REMITTING MULTIPLE SCLEROSIS
     Route: 058
     Dates: start: 20130503

REACTIONS (4)
  - Pharyngitis streptococcal [Unknown]
  - Influenza [Not Recovered/Not Resolved]
  - Fear of injection [Unknown]
  - Injection site pain [Recovered/Resolved]
